FAERS Safety Report 6067844-4 (Version None)
Quarter: 2009Q1

REPORT INFORMATION
  Report Type: 
  Country: None (occurrence: None)
  Receive Date: 20090202
  Receipt Date: 20090123
  Transmission Date: 20090719
  Serious: Yes (Hospitalization)
  Sender: FDA-Public Use
  Company Number: CIP08002755

PATIENT
  Sex: Female

DRUGS (1)
  1. ACTONEL [Suspect]
     Dosage: ORAL
     Route: 048

REACTIONS (5)
  - BURN OF INTERNAL ORGANS [None]
  - IATROGENIC INJURY [None]
  - ODYNOPHAGIA [None]
  - OESOPHAGEAL RUPTURE [None]
  - OESOPHAGEAL STENOSIS [None]
